FAERS Safety Report 12660685 (Version 2)
Quarter: 2016Q3

REPORT INFORMATION
  Report Type: Spontaneous
  Country: US (occurrence: US)
  Receive Date: 20160817
  Receipt Date: 20160901
  Transmission Date: 20161109
  Serious: No
  Sender: FDA-Public Use
  Company Number: US-RELYPSA-RLY2016001063

PATIENT
  Sex: Male

DRUGS (14)
  1. LEVOTHYROXINE SODIUM. [Concomitant]
     Active Substance: LEVOTHYROXINE SODIUM
  2. SERTRALINE HCL [Concomitant]
     Active Substance: SERTRALINE HYDROCHLORIDE
  3. ZYRTEC [Concomitant]
     Active Substance: CETIRIZINE HYDROCHLORIDE
  4. APTIOM [Concomitant]
     Active Substance: ESLICARBAZEPINE ACETATE
  5. PRAVACHOL [Concomitant]
     Active Substance: PRAVASTATIN SODIUM
  6. HUMULIN N [Concomitant]
     Active Substance: INSULIN HUMAN
  7. LISINOPRIL. [Concomitant]
     Active Substance: LISINOPRIL
  8. TRADJENTA [Concomitant]
     Active Substance: LINAGLIPTIN
  9. ASPIRIN                            /00002701/ [Concomitant]
     Active Substance: ASPIRIN
  10. NOVOLOG [Concomitant]
     Active Substance: INSULIN ASPART
  11. AMLODIPINE BESYLATE. [Concomitant]
     Active Substance: AMLODIPINE BESYLATE
  12. VITAMIN D                          /00107901/ [Concomitant]
     Active Substance: ERGOCALCIFEROL
  13. VELTASSA [Suspect]
     Active Substance: PATIROMER
     Indication: HYPERKALAEMIA
     Dosage: 8.4 G, QD
     Route: 050
     Dates: start: 20160616
  14. AMOXICILLIN. [Concomitant]
     Active Substance: AMOXICILLIN

REACTIONS (1)
  - Constipation [Not Recovered/Not Resolved]
